FAERS Safety Report 10301703 (Version 2)
Quarter: 2014Q3

REPORT INFORMATION
  Report Type: Spontaneous
  Country: US (occurrence: US)
  Receive Date: 20140714
  Receipt Date: 20140714
  Transmission Date: 20150326
  Serious: Yes (Hospitalization, Other)
  Sender: FDA-Public Use
  Company Number: US-009507513-2009SP023296

PATIENT
  Sex: Female
  Weight: 70.31 kg

DRUGS (5)
  1. NUVARING [Suspect]
     Active Substance: ETHINYL ESTRADIOL\ETONOGESTREL
     Indication: CONTRACEPTION
     Dosage: UNK
     Route: 067
     Dates: start: 200611, end: 20070317
  2. NUVARING [Suspect]
     Active Substance: ETHINYL ESTRADIOL\ETONOGESTREL
     Indication: DYSMENORRHOEA
  3. MAXALT [Concomitant]
     Active Substance: RIZATRIPTAN BENZOATE
     Dosage: 10 MG, UNK
     Dates: start: 2005
  4. LEVOTHYROXINE SODIUM. [Concomitant]
     Active Substance: LEVOTHYROXINE SODIUM
     Dosage: 125 MG, QD
     Dates: start: 2002
  5. NUVARING [Suspect]
     Active Substance: ETHINYL ESTRADIOL\ETONOGESTREL
     Indication: MENORRHAGIA

REACTIONS (7)
  - Right ventricular dysfunction [Unknown]
  - Abdominal pain upper [Recovered/Resolved]
  - Pulmonary embolism [Recovered/Resolved]
  - Pulmonary hypertension [Unknown]
  - Dyspnoea [Unknown]
  - Off label use [Unknown]
  - Chest discomfort [Unknown]

NARRATIVE: CASE EVENT DATE: 200611
